FAERS Safety Report 7374714-8 (Version None)
Quarter: 2011Q1

REPORT INFORMATION
  Report Type: 
  Country: None (occurrence: None)
  Receive Date: 20110325
  Receipt Date: 20100825
  Transmission Date: 20110831
  Serious: No
  Sender: FDA-Public Use
  Company Number: US-MYLANLABS-2010S1015748

PATIENT
  Age: 52 Year
  Sex: Female
  Weight: 79.38 kg

DRUGS (6)
  1. CYMBALTA [Concomitant]
     Indication: DEPRESSION
  2. ESTROGENIC SUBSTANCE [Concomitant]
     Indication: MENOPAUSE
  3. PROGESTERONE [Concomitant]
     Indication: MENOPAUSE
  4. TAPENTADOL [Concomitant]
     Indication: PAIN
     Dosage: AS NEEDED
     Route: 048
  5. OXCARBAZEPINE [Concomitant]
     Indication: PAIN
  6. FENTANYL-100 [Suspect]
     Indication: PAIN
     Dosage: CHANGED Q48H
     Route: 062
     Dates: start: 20080101

REACTIONS (1)
  - WITHDRAWAL SYNDROME [None]
